FAERS Safety Report 21526163 (Version 4)
Quarter: 2023Q2

REPORT INFORMATION
  Report Type: Report from Study
  Country: GB (occurrence: GB)
  Receive Date: 20221031
  Receipt Date: 20230410
  Transmission Date: 20230721
  Serious: Yes (Other)
  Sender: FDA-Public Use
  Company Number: GB-NOVARTISPH-NVSC2022GB237146

PATIENT
  Sex: Female

DRUGS (5)
  1. COSENTYX [Suspect]
     Active Substance: SECUKINUMAB
     Indication: Psoriasis
     Dosage: 300 MG, QW (INJECT 300 MG (ONE PEN) ON WEEKS 0, 1, 2, 3 THEREAFTER AS DIRECTED)
     Route: 058
     Dates: start: 20181106
  2. COSENTYX [Suspect]
     Active Substance: SECUKINUMAB
     Dosage: 300 MG, QMO
     Route: 058
  3. COSENTYX [Suspect]
     Active Substance: SECUKINUMAB
     Dosage: 150 MG
     Route: 058
  4. COSENTYX [Suspect]
     Active Substance: SECUKINUMAB
     Dosage: 300 MG, QMO (ONCE MONTHLY STARTING FROM WEEK 4 AS DIRECTED)
     Route: 058
     Dates: start: 2022
  5. AMITRIPTYLINE [Concomitant]
     Active Substance: AMITRIPTYLINE
     Indication: Insomnia
     Dosage: UNK
     Route: 065

REACTIONS (12)
  - Transient ischaemic attack [Unknown]
  - Hyperthyroidism [Unknown]
  - COVID-19 [Unknown]
  - Skin haemorrhage [Unknown]
  - Skin exfoliation [Unknown]
  - Pain [Unknown]
  - Influenza [Unknown]
  - Skin disorder [Unknown]
  - Thyroid disorder [Unknown]
  - Accidental exposure to product [Unknown]
  - Wrong technique in device usage process [Unknown]
  - Inappropriate schedule of product administration [Unknown]
